FAERS Safety Report 9001907 (Version 1)
Quarter: 2013Q1

REPORT INFORMATION
  Report Type: Spontaneous
  Country: FR (occurrence: FR)
  Receive Date: 20130107
  Receipt Date: 20130107
  Transmission Date: 20140127
  Serious: Yes (Other)
  Sender: FDA-Public Use
  Company Number: FR-ASTRAZENECA-2012SE96369

PATIENT
  Sex: Male

DRUGS (4)
  1. XEROQUEL [Suspect]
     Indication: SCHIZOPHRENIA
     Route: 048
     Dates: start: 201211
  2. TERCIAN [Concomitant]
     Indication: SCHIZOPHRENIA
     Route: 048
  3. LOXAPAC [Concomitant]
     Indication: SCHIZOPHRENIA
     Route: 048
  4. VALIUM [Concomitant]
     Route: 048

REACTIONS (2)
  - Tooth loss [Not Recovered/Not Resolved]
  - Dyskinesia [Not Recovered/Not Resolved]
